FAERS Safety Report 5713219-4 (Version None)
Quarter: 2008Q2

REPORT INFORMATION
  Report Type: 
  Country: None (occurrence: None)
  Receive Date: 20080422
  Receipt Date: 19960709
  Transmission Date: 20081010
  Serious: Yes (Death, Hospitalization)
  Sender: FDA-Public Use
  Company Number: JP-ROCHE-65384

PATIENT
  Sex: Female
  Weight: 49.6 kg

DRUGS (18)
  1. TRETINOIN [Suspect]
     Route: 048
     Dates: start: 19960129, end: 19960215
  2. FOY [Concomitant]
     Route: 042
     Dates: start: 19960123, end: 19960216
  3. DALACIN [Concomitant]
     Route: 042
     Dates: start: 19960131, end: 19960206
  4. KEITEN [Concomitant]
     Route: 042
     Dates: start: 19960131, end: 19960206
  5. VENOGLOBULIN-I [Concomitant]
     Route: 042
     Dates: start: 19960131, end: 19960205
  6. MIRACLID [Concomitant]
     Route: 042
     Dates: start: 19960202, end: 19960214
  7. FLUMARIN [Concomitant]
     Route: 041
     Dates: start: 19960123, end: 19960130
  8. TIENAM [Concomitant]
     Route: 041
     Dates: start: 19960207, end: 19960216
  9. TIENAM [Concomitant]
     Route: 041
     Dates: start: 19960207, end: 19960216
  10. DIFLUCAN [Concomitant]
     Route: 041
     Dates: start: 19960207, end: 19960216
  11. FRESH FROZEN PLASMA [Concomitant]
     Dates: start: 19960216
  12. PLATELETS [Concomitant]
     Dates: start: 19960129, end: 19960216
  13. BLOOD, PACKED RED CELLS [Concomitant]
     Dosage: DRUG NAME REPORTED AS RC-MAP
     Dates: start: 19960129, end: 19960212
  14. BH-AC [Concomitant]
     Route: 042
     Dates: start: 19960124, end: 19960129
  15. BH-AC [Concomitant]
     Route: 042
     Dates: start: 19960202, end: 19960206
  16. MERCAPTOPURINE [Concomitant]
     Route: 048
     Dates: start: 19960124, end: 19960129
  17. MERCAPTOPURINE [Concomitant]
     Route: 048
     Dates: start: 19960202, end: 19960206
  18. VINCRISTINE [Concomitant]
     Route: 042
     Dates: start: 19960124, end: 19960129

REACTIONS (2)
  - DEATH [None]
  - PLEURAL EFFUSION [None]
